FAERS Safety Report 10518846 (Version 2)
Quarter: 2014Q4

REPORT INFORMATION
  Report Type: Spontaneous
  Country: US (occurrence: US)
  Receive Date: 20141015
  Receipt Date: 20141020
  Transmission Date: 20150528
  Serious: No
  Sender: FDA-Public Use
  Company Number: US-009507513-1410USA000710

PATIENT

DRUGS (2)
  1. ASMANEX [Suspect]
     Active Substance: MOMETASONE FUROATE
     Dosage: UNK
     Route: 055
  2. ASMANEX [Suspect]
     Active Substance: MOMETASONE FUROATE
     Dosage: TWO INHALATIONS DAILY
     Route: 055
     Dates: start: 2012

REACTIONS (5)
  - Accidental exposure to product [Unknown]
  - Incorrect dose administered [Unknown]
  - Drug administration error [Unknown]
  - Product container issue [Unknown]
  - No adverse event [Unknown]

NARRATIVE: CASE EVENT DATE: 2014
